FAERS Safety Report 15155752 (Version 1)
Quarter: 2018Q3

REPORT INFORMATION
  Report Type: Report from Study
  Country: None (occurrence: IT)
  Receive Date: 20180717
  Receipt Date: 20180717
  Transmission Date: 20181010
  Serious: Yes (Other)
  Sender: FDA-Public Use
  Company Number: IT-BAUSCH-BL-2018-019522

PATIENT
  Age: 23 Year
  Sex: Female

DRUGS (2)
  1. METFORMIN [Suspect]
     Active Substance: METFORMIN HYDROCHLORIDE
     Indication: INTENTIONAL SELF-INJURY
     Route: 048
     Dates: start: 20170611, end: 20170611
  2. NICOZID ISONIAZIDE [Suspect]
     Active Substance: ISONIAZID
     Indication: INTENTIONAL SELF-INJURY
     Route: 048
     Dates: start: 20170611, end: 20170611

REACTIONS (3)
  - Delusion [Recovering/Resolving]
  - Sopor [Recovering/Resolving]
  - Delirium [None]

NARRATIVE: CASE EVENT DATE: 20170611
